FAERS Safety Report 9518058 (Version 1)
Quarter: 2013Q3

REPORT INFORMATION
  Report Type: Spontaneous
  Country: US (occurrence: US)
  Receive Date: 20130912
  Receipt Date: 20130912
  Transmission Date: 20140515
  Serious: No
  Sender: FDA-Public Use
  Company Number: US-PFIZER INC-2013260906

PATIENT
  Age: 56 Year
  Sex: Female

DRUGS (2)
  1. XELJANZ [Suspect]
     Indication: ARTHROPATHY
     Dosage: 5 MG, 2X/DAY (BID)
     Dates: start: 20130904
  2. IRON [Suspect]
     Dosage: UNK
     Dates: start: 201309

REACTIONS (3)
  - Headache [Unknown]
  - Abdominal pain upper [Unknown]
  - Dysphonia [Unknown]
